FAERS Safety Report 8075610-3 (Version None)
Quarter: 2012Q1

REPORT INFORMATION
  Report Type: 
  Country: None (occurrence: None)
  Receive Date: 20120127
  Receipt Date: 20120117
  Transmission Date: 20120608
  Serious: Yes (Other)
  Sender: FDA-Public Use
  Company Number: DE-UCBSA-038880

PATIENT
  Age: 81 Year
  Sex: Female

DRUGS (11)
  1. MOTILIUM [Concomitant]
  2. ALLEGRON [Concomitant]
     Dosage: 25 MG TABLETS 2 AT A TIME
  3. MADOPAR [Suspect]
     Dosage: 100/25 MG 1 TABLET 4 TIMES DAILY
  4. OSTELIN VIT D [Concomitant]
  5. NEUPRO [Suspect]
     Indication: PARKINSON'S DISEASE
     Dosage: PREVIOUS DOSE:2 MG ONCE A DAY
     Route: 062
     Dates: start: 20110629
  6. NEXIUM [Concomitant]
     Dosage: SOAKED
  7. MEDOPA [Concomitant]
     Route: 048
  8. PANAMAX [Concomitant]
     Dosage: 500 MG 2 TABLETS AT A TIME
  9. MOTILIUM [Concomitant]
  10. MADOPAR [Suspect]
     Dosage: 1 CAPSULE DAILY EVENING
  11. MOVIPREP [Concomitant]
     Dosage: MORNING ON EVERY SECOND DAY

REACTIONS (9)
  - CONSTIPATION [None]
  - HOT FLUSH [None]
  - DRUG INEFFECTIVE [None]
  - DECUBITUS ULCER [None]
  - HYPERHIDROSIS [None]
  - EMOTIONAL DISTRESS [None]
  - PAIN [None]
  - PARKINSON'S DISEASE [None]
  - DISCOMFORT [None]
